FAERS Safety Report 5427678-8 (Version None)
Quarter: 2007Q3

REPORT INFORMATION
  Report Type: 
  Country: None (occurrence: None)
  Receive Date: 20070823
  Receipt Date: 20070809
  Transmission Date: 20080115
  Serious: Yes (Life-Threatening, Other)
  Sender: FDA-Public Use
  Company Number: CLOF-10601

PATIENT
  Age: 64 Year
  Sex: Female
  Weight: 54.2 kg

DRUGS (4)
  1. CLOFARABINE (BLIND) [Suspect]
     Indication: ACUTE MYELOID LEUKAEMIA
     Dosage: 61 MG QD X 5 IV
     Route: 042
     Dates: start: 20070629, end: 20070703
  2. CYTARABINE [Suspect]
     Indication: ACUTE MYELOID LEUKAEMIA
     Dosage: 1520 MG QD X 5 IV
     Route: 042
     Dates: start: 20070629, end: 20070703
  3. NIFEDIPINE [Concomitant]
  4. ALTACE. MFR: HOECHST PHARMACEUTICALS, INCORPORATED [Concomitant]

REACTIONS (22)
  - ATRIAL FIBRILLATION [None]
  - BLINDNESS UNILATERAL [None]
  - BLOOD CREATINE PHOSPHOKINASE INCREASED [None]
  - BLOOD POTASSIUM INCREASED [None]
  - CARDIAC FAILURE CONGESTIVE [None]
  - CARDIO-RESPIRATORY ARREST [None]
  - CATARACT [None]
  - CONJUNCTIVAL HAEMORRHAGE [None]
  - DIASTOLIC DYSFUNCTION [None]
  - DILATATION ATRIAL [None]
  - FEBRILE NEUTROPENIA [None]
  - HEART RATE DECREASED [None]
  - KUSSMAUL RESPIRATION [None]
  - MITRAL VALVE INCOMPETENCE [None]
  - NAUSEA [None]
  - OCULAR HYPERAEMIA [None]
  - PNEUMONIA [None]
  - PULMONARY CONGESTION [None]
  - PULMONARY OEDEMA [None]
  - TRICUSPID VALVE INCOMPETENCE [None]
  - TROPONIN INCREASED [None]
  - VOMITING [None]
